FAERS Safety Report 5040209-X (Version None)
Quarter: 2006Q2

REPORT INFORMATION
  Report Type: 
  Country: None (occurrence: None)
  Receive Date: 20060630
  Receipt Date: 20060622
  Transmission Date: 20061013
  Serious: Yes (Life-Threatening, Hospitalization)
  Sender: FDA-Public Use
  Company Number: US-SANOFI-SYNTHELABO-A03200604096

PATIENT
  Age: 45 Year
  Sex: Male

DRUGS (1)
  1. PLAVIX [Suspect]
     Indication: CORONARY ARTERIAL STENT INSERTION
     Route: 048
     Dates: start: 20060608

REACTIONS (3)
  - CARDIAC ARREST [None]
  - STENT OCCLUSION [None]
  - VENTRICULAR FIBRILLATION [None]
